FAERS Safety Report 12244064 (Version 1)
Quarter: 2016Q2

REPORT INFORMATION
  Report Type: Spontaneous
  Country: US (occurrence: US)
  Receive Date: 20160406
  Receipt Date: 20160406
  Transmission Date: 20160815
  Serious: No
  Sender: FDA-Public Use
  Company Number: US-ELI_LILLY_AND_COMPANY-US201603004093

PATIENT
  Sex: Male

DRUGS (9)
  1. HUMULIN R [Suspect]
     Active Substance: INSULIN HUMAN
     Indication: DIABETES MELLITUS
     Dosage: 2 U, PRN
     Route: 058
     Dates: start: 201510
  2. HUMULIN R [Suspect]
     Active Substance: INSULIN HUMAN
     Dosage: 10 U, EACH EVENING
     Route: 058
  3. HUMULIN R [Suspect]
     Active Substance: INSULIN HUMAN
     Dosage: 10 U, EACH EVENING
     Route: 058
     Dates: start: 201510
  4. HUMULIN R [Suspect]
     Active Substance: INSULIN HUMAN
     Dosage: 12 U, QD MIDDAY
     Route: 058
  5. NOVOLOG [Concomitant]
     Active Substance: INSULIN ASPART
  6. HUMULIN R [Suspect]
     Active Substance: INSULIN HUMAN
     Dosage: 15 U, EACH MORNING
     Route: 058
     Dates: start: 201510
  7. HUMULIN R [Suspect]
     Active Substance: INSULIN HUMAN
     Dosage: 15 U, EACH MORNING
     Route: 058
  8. HUMULIN R [Suspect]
     Active Substance: INSULIN HUMAN
     Dosage: 12 U, QD MIDDAY
     Route: 058
     Dates: start: 201510
  9. HUMULIN R [Suspect]
     Active Substance: INSULIN HUMAN
     Dosage: 2 U, PRN
     Route: 058

REACTIONS (3)
  - Wrong technique in product usage process [Unknown]
  - Blood glucose increased [Unknown]
  - Glycosylated haemoglobin increased [Unknown]

NARRATIVE: CASE EVENT DATE: 201510
